FAERS Safety Report 5084038-X (Version None)
Quarter: 2006Q3

REPORT INFORMATION
  Report Type: 
  Country: None (occurrence: None)
  Receive Date: 20060819
  Receipt Date: 20041105
  Transmission Date: 20061208
  Serious: Yes (Hospitalization)
  Sender: FDA-Public Use
  Company Number: AR-BOEHRINGER INGELHEIM GMBH, GERMANY-2004-UK-01159UK

PATIENT
  Sex: Male
  Weight: 82 kg

DRUGS (7)
  1. AGGRENOX [Suspect]
     Indication: CEREBROVASCULAR ACCIDENT PROPHYLAXIS
     Route: 048
     Dates: start: 20040720, end: 20040930
  2. AGGRENOX [Suspect]
     Route: 048
     Dates: start: 20041111, end: 20051207
  3. MICARDIS [Suspect]
     Indication: CEREBROVASCULAR ACCIDENT PROPHYLAXIS
     Route: 048
     Dates: start: 20040720, end: 20040824
  4. PLACEBO [Suspect]
     Indication: CEREBROVASCULAR ACCIDENT PROPHYLAXIS
     Route: 048
     Dates: start: 20040720, end: 20040930
  5. PLACEBO [Suspect]
     Route: 048
     Dates: start: 20041111, end: 20051207
  6. LOSARTAN POSTASSIUM [Concomitant]
     Indication: NEPHROPATHY
     Route: 048
     Dates: start: 20050104
  7. ENALAPRIL MALEATE [Concomitant]
     Indication: HYPERTENSION
     Route: 048
     Dates: start: 20040522

REACTIONS (2)
  - CREATININE RENAL CLEARANCE DECREASED [None]
  - PROTEINURIA [None]
